FAERS Safety Report 4653556-8 (Version None)
Quarter: 2005Q2

REPORT INFORMATION
  Report Type: 
  Country: None (occurrence: None)
  Receive Date: 20050504
  Receipt Date: 20050428
  Transmission Date: 20051028
  Serious: Yes (Death)
  Sender: FDA-Public Use
  Company Number: 05-04-0714

PATIENT
  Age: 38 Year
  Sex: Male

DRUGS (1)
  1. CLOZAPINE [Suspect]
     Indication: INTERMITTENT EXPLOSIVE DISORDER
     Dosage: 450-500MG QD ORAL
     Route: 048
     Dates: start: 20020201, end: 20050401

REACTIONS (2)
  - ASTHMA [None]
  - CARDIAC FAILURE [None]
